FAERS Safety Report 14484583 (Version 1)
Quarter: 2018Q1

REPORT INFORMATION
  Report Type: Spontaneous
  Country: US (occurrence: US)
  Receive Date: 20180205
  Receipt Date: 20180205
  Transmission Date: 20180509
  Serious: Yes (Other)
  Sender: FDA-Public Use
  Company Number: US-ROCHE-2068123

PATIENT

DRUGS (2)
  1. AVASTIN [Suspect]
     Active Substance: BEVACIZUMAB
     Indication: NON-SMALL CELL LUNG CANCER STAGE IV
     Route: 065
  2. ALIMTA [Concomitant]
     Active Substance: PEMETREXED DISODIUM
     Route: 065

REACTIONS (2)
  - Blood creatinine increased [Unknown]
  - Glomerulonephritis [Unknown]
